FAERS Safety Report 15685259 (Version 2)
Quarter: 2019Q1

REPORT INFORMATION
  Report Type: Spontaneous
  Country: ES (occurrence: ES)
  Receive Date: 20181204
  Receipt Date: 20190122
  Transmission Date: 20190417
  Serious: Yes (Hospitalization, Other)
  Sender: FDA-Public Use
  Company Number: PHHY2018ES156749

PATIENT
  Age: 45 Year
  Sex: Male

DRUGS (7)
  1. DEFLAZACORTE [Suspect]
     Active Substance: DEFLAZACORT
     Indication: DRUG PROVOCATION TEST
     Dosage: 30 MG, QD
     Route: 065
  2. LORATADINE. [Concomitant]
     Active Substance: LORATADINE
     Indication: NASOPHARYNGEAL SURGERY
     Dosage: UNK
     Route: 065
  3. LORATADINE. [Concomitant]
     Active Substance: LORATADINE
     Indication: NASAL OPERATION
     Route: 048
  4. METHYLPREDNISOLONE. [Suspect]
     Active Substance: METHYLPREDNISOLONE
     Indication: RASH ERYTHEMATOUS
     Route: 065
  5. METHYLPREDNISOLONE. [Suspect]
     Active Substance: METHYLPREDNISOLONE
     Indication: PAPULE
  6. AMOXICILLIN TRIHYDRATE AND CLAVULANATE POTASS [Concomitant]
     Active Substance: AMOXICILLIN\CLAVULANATE POTASSIUM
     Indication: PRODUCT USED FOR UNKNOWN INDICATION
     Dosage: 875 MG, TID
     Route: 065
  7. DEFLAZACORTE [Suspect]
     Active Substance: DEFLAZACORT
     Dosage: 37.5 MG, UNK
     Route: 065

REACTIONS (7)
  - Oropharyngeal pain [Unknown]
  - Drug ineffective [Unknown]
  - Papule [Recovered/Resolved]
  - Rash erythematous [Recovered/Resolved]
  - Gingival erosion [Unknown]
  - Erythema multiforme [Recovered/Resolved]
  - Eyelid oedema [Recovered/Resolved]

NARRATIVE: CASE EVENT DATE: 201612
